FAERS Safety Report 8572824-0 (Version None)
Quarter: 2012Q3

REPORT INFORMATION
  Report Type: 
  Country: None (occurrence: None)
  Receive Date: 20120806
  Receipt Date: 20120802
  Transmission Date: 20120928
  Serious: Yes (Other)
  Sender: FDA-Public Use
  Company Number: BR-ROCHE-1097258

PATIENT
  Sex: Female
  Weight: 69 kg

DRUGS (9)
  1. MABTHERA [Suspect]
     Indication: RHEUMATOID ARTHRITIS
     Dates: start: 20111001
  2. LEVOTHYROXINE SODIUM [Concomitant]
  3. MABTHERA [Suspect]
     Dates: start: 20120218
  4. DIAMICRON [Concomitant]
  5. PRISTIQ [Concomitant]
  6. FORMOTEROL FUMARATE [Concomitant]
  7. MABTHERA [Suspect]
     Dates: start: 20120303, end: 20120303
  8. PANTOPRAZOLE [Concomitant]
  9. NORIPURUM [Concomitant]

REACTIONS (2)
  - ANAEMIA [None]
  - EMPHYSEMA [None]
